FAERS Safety Report 5399166-9 (Version None)
Quarter: 2007Q3

REPORT INFORMATION
  Report Type: 
  Country: None (occurrence: None)
  Receive Date: 20070727
  Receipt Date: 20070719
  Transmission Date: 20080115
  Serious: Yes (Other)
  Sender: FDA-Public Use
  Company Number: US-ELI_LILLY_AND_COMPANY-US200703001037

PATIENT
  Age: 78 Year
  Sex: Male

DRUGS (2)
  1. HUMULIN 50/50 [Suspect]
     Indication: TYPE 2 DIABETES MELLITUS
     Dates: start: 19870101
  2. HUMALOG [Suspect]

REACTIONS (6)
  - BLOOD GLUCOSE DECREASED [None]
  - BLOOD GLUCOSE INCREASED [None]
  - GLYCOSYLATED HAEMOGLOBIN INCREASED [None]
  - NEUROPATHY [None]
  - RENAL FAILURE [None]
  - RETINOPATHY [None]
